FAERS Safety Report 20938000 (Version 1)
Quarter: 2022Q2

REPORT INFORMATION
  Report Type: Spontaneous
  Country: ZA (occurrence: ZA)
  Receive Date: 20220609
  Receipt Date: 20220609
  Transmission Date: 20220720
  Serious: Yes (Other)
  Sender: FDA-Public Use
  Company Number: ZA-AMNEAL PHARMACEUTICALS-2022-AMRX-01621

PATIENT
  Age: 41 Year
  Sex: Female

DRUGS (5)
  1. ALBENZA [Suspect]
     Active Substance: ALBENDAZOLE
     Indication: Echinococciasis
     Dosage: UNK
     Route: 048
  2. ALBENZA [Suspect]
     Active Substance: ALBENDAZOLE
     Dosage: 400 MILLIGRAM, BID
     Route: 048
  3. TENOFOVIR DISOPROXIL FUMARATE [Suspect]
     Active Substance: TENOFOVIR DISOPROXIL FUMARATE
     Indication: HIV infection
     Dosage: UNK
     Route: 065
  4. EFAVIRENZ [Suspect]
     Active Substance: EFAVIRENZ
     Indication: HIV infection
     Dosage: UNK
     Route: 065
  5. EMTRICITABINE [Suspect]
     Active Substance: EMTRICITABINE
     Indication: HIV infection
     Dosage: UNK
     Route: 065

REACTIONS (2)
  - Premature delivery [Unknown]
  - Exposure during pregnancy [Unknown]
